FAERS Safety Report 16753533 (Version 1)
Quarter: 2019Q3

REPORT INFORMATION
  Report Type: Report from Study
  Country: US (occurrence: US)
  Receive Date: 20190829
  Receipt Date: 20190829
  Transmission Date: 20191005
  Serious: Yes (Hospitalization)
  Sender: FDA-Public Use
  Company Number: US-ROCHE-2329773

PATIENT
  Age: 51 Year
  Sex: Female

DRUGS (3)
  1. BACLOFEN. [Concomitant]
     Active Substance: BACLOFEN
     Route: 065
  2. OCREVUS [Suspect]
     Active Substance: OCRELIZUMAB
     Indication: PRIMARY PROGRESSIVE MULTIPLE SCLEROSIS
     Dosage: ONGOING YES?LAST INFUSION: 18/MAR/2019
     Route: 065
     Dates: start: 20181006
  3. BACLOFEN. [Concomitant]
     Active Substance: BACLOFEN
     Route: 065
     Dates: start: 2015

REACTIONS (7)
  - Abdominal pain upper [Not Recovered/Not Resolved]
  - Red blood cell abnormality [Unknown]
  - Splenomegaly [Not Recovered/Not Resolved]
  - Anaemia [Not Recovered/Not Resolved]
  - Feeding disorder [Unknown]
  - Babesiosis [Recovered/Resolved]
  - Hepatomegaly [Unknown]

NARRATIVE: CASE EVENT DATE: 2019
